FAERS Safety Report 11458339 (Version 1)
Quarter: 2015Q3

REPORT INFORMATION
  Report Type: Spontaneous
  Country: US (occurrence: US)
  Receive Date: 20150904
  Receipt Date: 20150904
  Transmission Date: 20151125
  Serious: Yes (Disabling)
  Sender: FDA-Public Use
  Company Number: US-JNJFOC-20150820912

PATIENT
  Sex: Female

DRUGS (2)
  1. UNSPECIFIED FENTANYL TRANSDERMA L SYSTEM [Suspect]
     Active Substance: FENTANYL
     Indication: PRODUCT USED FOR UNKNOWN INDICATION
     Route: 062
  2. DURAGESIC [Suspect]
     Active Substance: FENTANYL
     Indication: PRODUCT USED FOR UNKNOWN INDICATION
     Route: 062

REACTIONS (7)
  - Hyperhidrosis [Not Recovered/Not Resolved]
  - Drug dose omission [Unknown]
  - Adverse drug reaction [Unknown]
  - Product adhesion issue [Unknown]
  - Back disorder [Not Recovered/Not Resolved]
  - Wrong technique in product usage process [Unknown]
  - Disability [Not Recovered/Not Resolved]
